FAERS Safety Report 16476879 (Version 1)
Quarter: 2019Q2

REPORT INFORMATION
  Report Type: Spontaneous
  Country: AU (occurrence: AU)
  Receive Date: 20190626
  Receipt Date: 20190626
  Transmission Date: 20190711
  Serious: Yes (Hospitalization)
  Sender: FDA-Public Use
  Company Number: AU-B.I. PHARMACEUTICALS,INC./RIDGEFIELD-2019-BI-027110

PATIENT
  Age: 82 Year
  Sex: Male

DRUGS (1)
  1. JARDIAMET [Suspect]
     Active Substance: EMPAGLIFLOZIN\METFORMIN HYDROCHLORIDE
     Indication: DIABETES MELLITUS
     Route: 065
     Dates: end: 20190208

REACTIONS (3)
  - Urinary tract infection [Recovering/Resolving]
  - Systemic inflammatory response syndrome [Unknown]
  - Balanoposthitis [Recovering/Resolving]

NARRATIVE: CASE EVENT DATE: 20190208
